FAERS Safety Report 7817900-2 (Version None)
Quarter: 2011Q4

REPORT INFORMATION
  Report Type: 
  Country: None (occurrence: None)
  Receive Date: 20111017
  Receipt Date: 20111003
  Transmission Date: 20120403
  Serious: Yes (Other)
  Sender: FDA-Public Use
  Company Number: PHHY2011BR90589

PATIENT
  Age: 54 Year
  Sex: Female

DRUGS (4)
  1. CARVEDILOL [Suspect]
     Dosage: 25 MG, DAILY
  2. LOSARTAN POTASSIUM AND HYDROCHLOROTHIAZIDE [Suspect]
     Dosage: 1 DF(12.5 MG HYDRO AND 50 MG LOSAR), DAILY
  3. GLICLAZIDE [Suspect]
     Dosage: 30 MG, PER DAY
  4. AMLODIPINE [Suspect]
     Dosage: 5 MG, PER DAY

REACTIONS (18)
  - AMERICAN TRYPANOSOMIASIS [None]
  - HYPERTENSION [None]
  - LOW DENSITY LIPOPROTEIN INCREASED [None]
  - PRESYNCOPE [None]
  - BLOOD CHOLESTEROL INCREASED [None]
  - LEFT VENTRICULAR HYPERTROPHY [None]
  - LEFT ATRIAL DILATATION [None]
  - DYSPNOEA [None]
  - CARDIAC FAILURE [None]
  - CHEST PAIN [None]
  - ORTHOPNOEA [None]
  - OEDEMA PERIPHERAL [None]
  - DIZZINESS [None]
  - PACEMAKER GENERATED ARRHYTHMIA [None]
  - ATRIOVENTRICULAR BLOCK COMPLETE [None]
  - VENTRICULAR HYPOKINESIA [None]
  - BLOOD GLUCOSE INCREASED [None]
  - LEFT VENTRICULAR DYSFUNCTION [None]
